FAERS Safety Report 10666435 (Version 5)
Quarter: 2018Q3

REPORT INFORMATION
  Report Type: Spontaneous
  Country: US (occurrence: US)
  Receive Date: 20141221
  Receipt Date: 20180918
  Transmission Date: 20181010
  Serious: Yes (Other)
  Sender: FDA-Public Use
  Company Number: US-009507513-1412USA007618

PATIENT
  Age: 62 Year
  Sex: Female
  Weight: 98.87 kg

DRUGS (25)
  1. TIZANIDINE HYDROCHLORIDE. [Concomitant]
     Active Substance: TIZANIDINE HYDROCHLORIDE
     Dosage: 4 MG, TID; AS NEEDED
     Route: 048
  2. TRAMADOL HYDROCHLORIDE. [Concomitant]
     Active Substance: TRAMADOL HYDROCHLORIDE
     Dosage: 50 MG, 1?2 BY MOUTH ONCE A DAY
     Route: 048
  3. CRESTOR [Concomitant]
     Active Substance: ROSUVASTATIN CALCIUM
     Dosage: 40 MG, AT BED TIME
     Route: 048
  4. VIIBRYD [Concomitant]
     Active Substance: VILAZODONE HYDROCHLORIDE
     Indication: DEPRESSION
     Dosage: 20 MG, ONCE A DAY, BY MOUTH, AS DIRECTED AFTER FINISHING THE STARTER PACK
     Route: 048
  5. BASAGLAR [Concomitant]
     Active Substance: INSULIN GLARGINE
     Dosage: 30 IU, QAM
     Dates: start: 20180717
  6. OMEPRAZOLE. [Concomitant]
     Active Substance: OMEPRAZOLE
     Dosage: 40 MG, ONCE A DAY, BY MOUTH, AS NEEDED
     Route: 048
  7. ALLOPURINOL. [Concomitant]
     Active Substance: ALLOPURINOL
     Dosage: 300 MG, ONCE A DAY, BY MOUTH
     Route: 048
  8. FERROUS SULFATE. [Concomitant]
     Active Substance: FERROUS SULFATE
     Dosage: 325 MG (65 MG IRON), 1 ONCE A DAY, BY MOUTH
     Route: 048
  9. ALPRAZOLAM. [Concomitant]
     Active Substance: ALPRAZOLAM
     Dosage: 0.5 MG, BID, BY MOUTH
     Route: 048
  10. GABAPENTIN. [Concomitant]
     Active Substance: GABAPENTIN
     Dosage: 300 MG, BID
     Route: 048
  11. BASAGLAR [Concomitant]
     Active Substance: INSULIN GLARGINE
     Dosage: 64 IU, HS
     Dates: start: 20180717
  12. METFORMIN [Concomitant]
     Active Substance: METFORMIN HYDROCHLORIDE
     Dosage: 750 MG, BID, BY MOUTH, WITH MEALS, QUANTITY: 180
     Route: 048
  13. INSULIN [Concomitant]
     Active Substance: INSULIN NOS
     Dosage: BD INSULIN PEN NEEDLE, 1 ONCE A DAY
     Route: 058
  14. OMEGA?3 MARINE TRIGLYCERIDES [Concomitant]
     Active Substance: FISH OIL
     Dosage: FISH OIL, 300?1000 MG, 1 BY MOUTH ONCE A DAY
     Route: 048
  15. GLIPIZIDE. [Concomitant]
     Active Substance: GLIPIZIDE
     Dosage: 10 MG, BID, 1 BY MOUTH TWICE A DAY
     Route: 048
     Dates: end: 20180723
  16. GLIPIZIDE. [Concomitant]
     Active Substance: GLIPIZIDE
     Dosage: 5 MG, BID
     Route: 048
     Dates: start: 20180724
  17. INSULIN [Concomitant]
     Active Substance: INSULIN NOS
     Dosage: SYRINGE HALF UNIT, 0.3 ML 31 GAUGE X 5/16^^ 1 TWICE A DAY
     Route: 058
  18. HYDROCHLOROTHIAZIDE (+) TRIAMTERENE [Concomitant]
     Active Substance: HYDROCHLOROTHIAZIDE\TRIAMTERENE
     Dosage: 75?50 MG, 1 BY MOUTH THREE TIMES A WEEK
     Route: 048
  19. LEVOCETIRIZINE [Concomitant]
     Active Substance: LEVOCETIRIZINE
     Dosage: 5 MG, BY MOUTH IN EVENING
     Route: 048
  20. ASPIRIN. [Concomitant]
     Active Substance: ASPIRIN
     Dosage: 325 MG, 1 BY MOUTH ONCE A DAY
     Route: 048
  21. JANUVIA [Suspect]
     Active Substance: SITAGLIPTIN PHOSPHATE
     Indication: DIABETES MELLITUS
     Dosage: HALF 100 MG TABLET/DAILY
     Route: 048
     Dates: start: 201501
  22. JANUVIA [Suspect]
     Active Substance: SITAGLIPTIN PHOSPHATE
     Dosage: 50 MG, QD
     Route: 048
     Dates: start: 20180717, end: 201807
  23. BUSPIRONE HYDROCHLORIDE. [Concomitant]
     Active Substance: BUSPIRONE HYDROCHLORIDE
     Dosage: 15 MG, 1 BY MOUTH THREE TIMES A DAY
     Route: 048
  24. LOSARTAN. [Concomitant]
     Active Substance: LOSARTAN
     Dosage: 25 MG, ONCE A DAY, BY MOUTH
     Route: 048
  25. CHOLECALCIFEROL [Concomitant]
     Active Substance: CHOLECALCIFEROL
     Dosage: 2,000 UNIT, 1 BY MOUTH THREE TIMES A WEEK
     Route: 048

REACTIONS (9)
  - Radiotherapy [Unknown]
  - Urine odour abnormal [Unknown]
  - Dizziness [Unknown]
  - Blood pressure decreased [Unknown]
  - Chronic kidney disease [Not Recovered/Not Resolved]
  - Blindness [Unknown]
  - Wrong technique in product usage process [Unknown]
  - Visual impairment [Recovered/Resolved]
  - Orthostatic hypotension [Recovered/Resolved]

NARRATIVE: CASE EVENT DATE: 201501
